FAERS Safety Report 9143901 (Version 1)
Quarter: 2013Q1

REPORT INFORMATION
  Report Type: Spontaneous
  Country: IT (occurrence: IT)
  Receive Date: 20130306
  Receipt Date: 20130306
  Transmission Date: 20140127
  Serious: Yes (Death)
  Sender: FDA-Public Use
  Company Number: PHHY2013IT021820

PATIENT
  Sex: Female

DRUGS (3)
  1. MEROPENEM [Suspect]
     Indication: URINARY TRACT INFECTION
     Dosage: 1 G, DAILY
     Route: 042
     Dates: start: 20130220
  2. TIGECYCLINE [Suspect]
     Indication: URINARY TRACT INFECTION
     Dosage: 100 MG, DAILY
     Route: 042
     Dates: start: 20130220
  3. COLISTIN [Suspect]
     Indication: SEPSIS
     Dosage: 1000000 MIU, DAILY
     Route: 042
     Dates: start: 20130220

REACTIONS (2)
  - Neutropenia [Fatal]
  - Natural killer cell count increased [Fatal]
